FAERS Safety Report 7471350-X (Version None)
Quarter: 2011Q2

REPORT INFORMATION
  Report Type: 
  Country: None (occurrence: None)
  Receive Date: 20110510
  Receipt Date: 20110505
  Transmission Date: 20111010
  Serious: Yes (Death)
  Sender: FDA-Public Use
  Company Number: US-GILEAD-2011-0038621

PATIENT
  Sex: Female

DRUGS (5)
  1. LETAIRIS [Suspect]
     Indication: PULMONARY HYPERTENSION
     Route: 048
     Dates: start: 20101101
  2. LETAIRIS [Suspect]
     Indication: SYSTEMIC LUPUS ERYTHEMATOSUS
  3. LETAIRIS [Suspect]
     Indication: CARDIAC FAILURE CONGESTIVE
  4. LETAIRIS [Suspect]
     Indication: RESTRICTIVE PULMONARY DISEASE
  5. ADCIRCA [Concomitant]

REACTIONS (2)
  - DERMATITIS [None]
  - DISEASE PROGRESSION [None]
